FAERS Safety Report 7880583-X (Version None)
Quarter: 2011Q4

REPORT INFORMATION
  Report Type: 
  Country: None (occurrence: None)
  Receive Date: 20111101
  Receipt Date: 20101103
  Transmission Date: 20120403
  Serious: No
  Sender: FDA-Public Use
  Company Number: US-BAYER-201040810NA

PATIENT
  Sex: Male

DRUGS (10)
  1. LEVITRA [Suspect]
     Indication: ERECTILE DYSFUNCTION
     Route: 048
  2. UROXATRAL [Concomitant]
  3. NIASPAN [Concomitant]
  4. LISINOPRIL AND HYDROCHLOROTHIAZIDE [Concomitant]
  5. ASPIRIN [Concomitant]
  6. BERBERINE [Concomitant]
  7. JANUVIA [Concomitant]
  8. AMLODIPINE [Concomitant]
  9. PHENAZOPYRIDINE HCL TAB [Concomitant]
  10. FUROSEMIDE [Concomitant]

REACTIONS (1)
  - ERECTILE DYSFUNCTION [None]
